FAERS Safety Report 4584295-X (Version None)
Quarter: 2005Q1

REPORT INFORMATION
  Report Type: 
  Country: None (occurrence: None)
  Receive Date: 20050125
  Receipt Date: 20041129
  Transmission Date: 20050727
  Serious: No
  Sender: FDA-Public Use
  Company Number: USA041082324

PATIENT
  Age: 80 Year
  Sex: Female
  Weight: 48 kg

DRUGS (5)
  1. FORTEO [Suspect]
     Indication: OSTEOPOROSIS
     Dosage: 20 UG EVERY OTHER DAY
     Dates: start: 20041015
  2. ATIVAN [Concomitant]
  3. THEOPHYLLINE [Concomitant]
  4. POTASSIUM CHLORIDE [Concomitant]
  5. MULTI-VITAMIN [Concomitant]

REACTIONS (6)
  - BLOOD CALCIUM INCREASED [None]
  - CONSTIPATION [None]
  - DIFFICULTY IN WALKING [None]
  - DIZZINESS [None]
  - MUSCLE SPASMS [None]
  - PAIN [None]
